FAERS Safety Report 17710337 (Version 1)
Quarter: 2020Q2

REPORT INFORMATION
  Report Type: Spontaneous
  Country: US (occurrence: US)
  Receive Date: 20200427
  Receipt Date: 20200427
  Transmission Date: 20200714
  Serious: No
  Sender: FDA-Public Use
  Company Number: US-SA-2020SA108028

PATIENT
  Age: 48 Year
  Sex: Female

DRUGS (2)
  1. TOUJEO [Suspect]
     Active Substance: INSULIN GLARGINE
     Dosage: 32 IU
  2. TOUJEO [Suspect]
     Active Substance: INSULIN GLARGINE
     Dosage: 34 IU

REACTIONS (2)
  - Wrong technique in device usage process [Unknown]
  - Intentional product use issue [Unknown]
